FAERS Safety Report 4397275-4 (Version None)
Quarter: 2004Q3

REPORT INFORMATION
  Report Type: 
  Country: None (occurrence: None)
  Receive Date: 20040708
  Receipt Date: 20040622
  Transmission Date: 20050211
  Serious: No
  Sender: FDA-Public Use
  Company Number: 2004GB00183

PATIENT
  Sex: Female

DRUGS (1)
  1. ACCOLATE [Suspect]
     Indication: ASTHMA
     Dosage: 20 MG BID PO
     Route: 048
     Dates: start: 19980101, end: 20040622

REACTIONS (5)
  - FIBROMYALGIA [None]
  - HYPOAESTHESIA [None]
  - JOINT SWELLING [None]
  - OEDEMA PERIPHERAL [None]
  - PARAESTHESIA [None]
